FAERS Safety Report 22380550 (Version 2)
Quarter: 2023Q2

REPORT INFORMATION
  Report Type: Spontaneous
  Country: PL (occurrence: PL)
  Receive Date: 20230529
  Receipt Date: 20230602
  Transmission Date: 20230722
  Serious: Yes (Hospitalization, Other)
  Sender: FDA-Public Use
  Company Number: PL-LESVI-2023002022

PATIENT
  Age: 27 Year
  Sex: Male

DRUGS (26)
  1. ARIPIPRAZOLE [Suspect]
     Active Substance: ARIPIPRAZOLE
     Indication: Depression
     Dosage: 22.5 MG, QD
     Route: 065
     Dates: start: 202204
  2. ARIPIPRAZOLE [Suspect]
     Active Substance: ARIPIPRAZOLE
     Indication: Bipolar disorder
     Dosage: 22.5 MG, QD
     Route: 065
     Dates: start: 2021
  3. DULOXETINE [Suspect]
     Active Substance: DULOXETINE
     Indication: Bipolar disorder
     Dosage: UNK (UP TO 120MG)
     Route: 065
     Dates: start: 2021
  4. DULOXETINE [Suspect]
     Active Substance: DULOXETINE
     Indication: Depression
  5. QUETIAPINE [Suspect]
     Active Substance: QUETIAPINE
     Indication: Bipolar disorder
     Dosage: 100 MG, QD
     Route: 065
     Dates: start: 2021
  6. QUETIAPINE [Suspect]
     Active Substance: QUETIAPINE
     Indication: Depression
  7. VALPROATE SODIUM [Concomitant]
     Active Substance: VALPROATE SODIUM
     Indication: Bipolar disorder
     Dosage: 1500 MG, QD
     Route: 065
  8. VALPROATE SODIUM [Concomitant]
     Active Substance: VALPROATE SODIUM
     Indication: Depression
  9. SERTRALINE [Concomitant]
     Active Substance: SERTRALINE HYDROCHLORIDE
     Indication: Depression
     Dosage: 200 MG, QD
     Route: 065
     Dates: start: 2021
  10. SERTRALINE [Concomitant]
     Active Substance: SERTRALINE HYDROCHLORIDE
     Indication: Bipolar disorder
  11. ESCITALOPRAM [Concomitant]
     Active Substance: ESCITALOPRAM OXALATE
     Indication: Bipolar disorder
     Dosage: 10 MG
     Route: 065
  12. ESCITALOPRAM [Concomitant]
     Active Substance: ESCITALOPRAM OXALATE
     Indication: Depression
     Dosage: 20 MG, QD
     Route: 065
     Dates: start: 2021
  13. ESCITALOPRAM [Concomitant]
     Active Substance: ESCITALOPRAM OXALATE
     Dosage: 10 MG
     Route: 065
     Dates: start: 202204
  14. VENLAFAXINE [Concomitant]
     Active Substance: VENLAFAXINE HYDROCHLORIDE
     Indication: Depression
     Dosage: UNK (UP TO 300MG)
     Route: 065
     Dates: start: 2021
  15. VENLAFAXINE [Concomitant]
     Active Substance: VENLAFAXINE HYDROCHLORIDE
     Indication: Bipolar disorder
     Dosage: 225 MG, QD
     Route: 065
  16. METHYLPHENIDATE [Concomitant]
     Active Substance: METHYLPHENIDATE
     Indication: Bipolar disorder
     Dosage: 1500 MG, QD
     Route: 065
  17. METHYLPHENIDATE [Concomitant]
     Active Substance: METHYLPHENIDATE
     Indication: Depression
  18. LITHIUM [Concomitant]
     Active Substance: LITHIUM
     Indication: Bipolar disorder
     Dosage: 1000 MG, QD
     Route: 065
     Dates: start: 2021
  19. LITHIUM [Concomitant]
     Active Substance: LITHIUM
     Indication: Depression
     Dosage: 1000 MG, QD
     Route: 065
     Dates: start: 202204
  20. CHLORPROTHIXENE [Concomitant]
     Active Substance: CHLORPROTHIXENE
     Indication: Depression
     Dosage: 100 MG, QD
     Route: 065
     Dates: start: 2021
  21. CHLORPROTHIXENE [Concomitant]
     Active Substance: CHLORPROTHIXENE
     Indication: Bipolar disorder
     Dosage: 50 MG/G
     Route: 065
     Dates: start: 202204
  22. CHLORPROTHIXENE [Concomitant]
     Active Substance: CHLORPROTHIXENE
     Dosage: 50 MG/G
     Route: 065
  23. OLANZAPINE [Concomitant]
     Active Substance: OLANZAPINE
     Indication: Depression
     Dosage: 20 MG, QD
     Route: 065
     Dates: start: 2021
  24. OLANZAPINE [Concomitant]
     Active Substance: OLANZAPINE
     Indication: Bipolar disorder
  25. VALPROIC ACID [Concomitant]
     Active Substance: VALPROIC ACID
     Indication: Depression
     Dosage: 1500 MG, QD
     Route: 065
     Dates: start: 2021
  26. VALPROIC ACID [Concomitant]
     Active Substance: VALPROIC ACID
     Indication: Bipolar disorder
     Dosage: 1500 MG, QD
     Route: 065
     Dates: start: 202204

REACTIONS (2)
  - Suicidal ideation [Unknown]
  - Drug ineffective for unapproved indication [Unknown]
